FAERS Safety Report 20127006 (Version 1)
Quarter: 2021Q4

REPORT INFORMATION
  Report Type: Spontaneous
  Country: ES (occurrence: ES)
  Receive Date: 20211129
  Receipt Date: 20211129
  Transmission Date: 20220303
  Serious: Yes (Other)
  Sender: FDA-Public Use
  Company Number: ES-AMGEN-ESPSP2021187172

PATIENT
  Age: 62 Year
  Sex: Male

DRUGS (9)
  1. PANITUMUMAB [Suspect]
     Active Substance: PANITUMUMAB
     Indication: Adenocarcinoma of colon
     Dosage: UNK
     Route: 065
     Dates: start: 201811
  2. PANITUMUMAB [Suspect]
     Active Substance: PANITUMUMAB
     Dosage: 4.8 MILLIGRAM
     Route: 065
  3. PANITUMUMAB [Suspect]
     Active Substance: PANITUMUMAB
     Dosage: 3.6 MILLIGRAM
     Route: 065
     Dates: end: 201908
  4. PANITUMUMAB [Suspect]
     Active Substance: PANITUMUMAB
     Dosage: UNK
     Route: 065
     Dates: start: 202001
  5. OXALIPLATIN [Suspect]
     Active Substance: OXALIPLATIN
     Indication: Adenocarcinoma of colon
     Dosage: UNK
     Route: 065
     Dates: start: 201811
  6. OXALIPLATIN [Suspect]
     Active Substance: OXALIPLATIN
     Dosage: UNK (20% DOSE REDUCTION)
     Route: 065
     Dates: end: 201908
  7. LEUCOVORIN [Concomitant]
     Active Substance: LEUCOVORIN
     Indication: Adenocarcinoma of colon
     Dosage: UNK
     Dates: start: 201811, end: 201908
  8. FLUOROURACIL [Concomitant]
     Active Substance: FLUOROURACIL
     Indication: Adenocarcinoma of colon
     Dosage: UNK
     Dates: start: 201811, end: 201908
  9. FLUOROURACIL [Concomitant]
     Active Substance: FLUOROURACIL
     Dosage: UNK
     Dates: start: 202001

REACTIONS (6)
  - Lung carcinoma cell type unspecified recurrent [Unknown]
  - Hepatic cancer recurrent [Unknown]
  - Neurotoxicity [Unknown]
  - Therapeutic product effect incomplete [Unknown]
  - Rash [Unknown]
  - Skin toxicity [Unknown]

NARRATIVE: CASE EVENT DATE: 20190201
